FAERS Safety Report 8642156 (Version 2)
Quarter: 2014Q1

REPORT INFORMATION
  Report Type: Spontaneous
  Country: US (occurrence: None)
  Receive Date: 20120323
  Receipt Date: 20130305
  Transmission Date: 20141002
  Serious: Yes (Other)
  Sender: FDA-Public Use
  Company Number: 163-21880-11111193

PATIENT
  Age: 64 Year
  Sex: Male
  Weight: 107.73 kg

DRUGS (11)
  1. REVLIMID [Suspect]
     Indication: PLASMA CELL MYELOMA
     Dosage: 25 MG, 21 DAYS EVERY 28 DAYS
     Route: 048
     Dates: start: 20100908, end: 201109
  2. COUMADIN [Concomitant]
  3. DECADRON [Concomitant]
  4. PAMIDRONATE DISODIUM [Concomitant]
  5. LASIX [Concomitant]
  6. SIMETHICONE (DIMETICONE, ACTIVATED) [Concomitant]
  7. KEFLEX [Concomitant]
  8. OMEPRAZOLE [Concomitant]
  9. SERTRALINE HYDROCHLORIDE [Concomitant]
  10. VENLAFAXINE [Concomitant]
  11. ZOMETA (ZOLEDRONIC ACID) [Concomitant]

REACTIONS (5)
  - Deep vein thrombosis [None]
  - Leukopenia [None]
  - Neutropenia [None]
  - Thrombocytopenia [None]
  - Oedema peripheral [None]
